FAERS Safety Report 9601343 (Version 1)
Quarter: 2013Q4

REPORT INFORMATION
  Report Type: Report from Study
  Country: US (occurrence: US)
  Receive Date: 20131007
  Receipt Date: 20131007
  Transmission Date: 20140711
  Serious: Yes (Other)
  Sender: FDA-Public Use
  Company Number: US-ROCHE-1283248

PATIENT
  Sex: Female

DRUGS (1)
  1. XELODA [Suspect]
     Indication: BREAST CANCER
     Route: 065
     Dates: start: 201210, end: 201308

REACTIONS (4)
  - Blood sodium decreased [Unknown]
  - Cardiac disorder [Unknown]
  - Pleural effusion [Unknown]
  - Drug ineffective [Unknown]
